FAERS Safety Report 9426830 (Version 1)
Quarter: 2013Q3

REPORT INFORMATION
  Report Type: Spontaneous
  Country: US (occurrence: US)
  Receive Date: 20130730
  Receipt Date: 20130730
  Transmission Date: 20140515
  Serious: Yes (Hospitalization)
  Sender: FDA-Public Use
  Company Number: US-SANOFI-AVENTIS-2013SA041115

PATIENT
  Age: 56 Year
  Sex: Female
  Weight: 59.31 kg

DRUGS (10)
  1. AMBIEN [Suspect]
     Indication: INSOMNIA
     Dosage: FREQUENCY: QHS
     Route: 048
     Dates: start: 20110102, end: 20130104
  2. AMBIEN [Suspect]
     Indication: INSOMNIA
     Route: 048
     Dates: start: 20130209, end: 20130209
  3. BLINDED THERAPY [Suspect]
     Indication: MAJOR DEPRESSION
     Route: 048
     Dates: start: 20130110, end: 20130209
  4. IBUPROFEN [Concomitant]
     Indication: MUSCULOSKELETAL PAIN
     Route: 048
  5. MIRALAX [Concomitant]
     Indication: CONSTIPATION
     Route: 048
  6. CLARITIN [Concomitant]
     Indication: RHINITIS ALLERGIC
     Route: 048
     Dates: start: 20101020
  7. CLOTRIMAZOLE [Concomitant]
     Indication: NEURODERMATITIS
     Route: 061
     Dates: start: 20121220
  8. CLOBETASOL [Concomitant]
     Route: 061
     Dates: start: 20121020
  9. MUPIROCIN [Concomitant]
     Route: 061
     Dates: start: 20121020
  10. VAGIFEM [Concomitant]
     Indication: ATROPHIC VULVOVAGINITIS
     Dosage: 1 TAB
     Route: 067
     Dates: start: 20121020

REACTIONS (3)
  - Suicide attempt [Unknown]
  - Intentional overdose [Unknown]
  - Somnolence [Recovered/Resolved]
